FAERS Safety Report 24105479 (Version 1)
Quarter: 2024Q3

REPORT INFORMATION
  Report Type: Spontaneous
  Country: GB (occurrence: GB)
  Receive Date: 20240717
  Receipt Date: 20240717
  Transmission Date: 20241017
  Serious: Yes (Life-Threatening, Hospitalization, Other)
  Sender: TEVA
  Company Number: GB-MHRA-TPP47969191C7619635YC1720384094838

PATIENT
  Age: 79 Year
  Sex: Male
  Weight: 96 kg

DRUGS (13)
  1. LEVOFLOXACIN [Suspect]
     Active Substance: LEVOFLOXACIN
     Dosage: STRENGTH : 500MG/100ML
     Route: 042
     Dates: start: 20240513
  2. CARVEDILOL [Concomitant]
     Active Substance: CARVEDILOL
     Dates: start: 20231005
  3. ACETAMINOPHEN [Concomitant]
     Active Substance: ACETAMINOPHEN
     Dosage: AS REQUIRED,
     Dates: start: 20231005
  4. VOLTAROL [Concomitant]
     Active Substance: DICLOFENAC SODIUM
     Dosage: APPLY THREE OR FOUR TIMES A DAY
     Dates: start: 20231005
  5. TIOTROPIUM [Concomitant]
     Active Substance: TIOTROPIUM
     Dosage: PUFFS
     Route: 055
     Dates: start: 20240701
  6. SENNA [Concomitant]
     Active Substance: SENNA LEAF\SENNOSIDES\SENNOSIDES A AND B
     Dosage: TAKE 1 OR 2 AT NIGHT AS NEEDED
     Dates: start: 20240701
  7. PREDNISOLONE [Concomitant]
     Active Substance: PREDNISOLONE
     Dates: start: 20231127
  8. XALATAN [Concomitant]
     Active Substance: LATANOPROST
     Dosage: ONE DROP ONCE DAILY TO BOTH EYES,
     Route: 047
     Dates: start: 20240412, end: 20240510
  9. DOXYCYCLINE [Concomitant]
     Active Substance: DOXYCYCLINE\DOXYCYCLINE HYCLATE
     Dosage: TWO NOW THEN ONE DAILY,
     Dates: start: 20240510, end: 20240517
  10. FUROSEMIDE [Concomitant]
     Active Substance: FUROSEMIDE
     Dosage: LUNCHTIME
     Dates: start: 20240701
  11. ATORVASTATIN [Concomitant]
     Active Substance: ATORVASTATIN
     Dosage: AT NIGHT,
     Dates: start: 20231005
  12. ASPIRIN [Concomitant]
     Active Substance: ASPIRIN
     Dates: start: 20231005
  13. CARBOCYSTEINE [Concomitant]
     Active Substance: CARBOCYSTEINE
     Dosage: TIME INTERVAL: 0.33333333 DAYS
     Dates: start: 20240701

REACTIONS (1)
  - Anaphylactic reaction [Recovered/Resolved with Sequelae]

NARRATIVE: CASE EVENT DATE: 20240601
